FAERS Safety Report 9648691 (Version 1)
Quarter: 2013Q4

REPORT INFORMATION
  Report Type: Spontaneous
  Country: US (occurrence: US)
  Receive Date: 20131028
  Receipt Date: 20131028
  Transmission Date: 20140711
  Serious: No
  Sender: FDA-Public Use
  Company Number: US-MYLANLABS-2012S1025377

PATIENT
  Age: 17 Year
  Sex: Female

DRUGS (1)
  1. RISPERIDONE TABLETS USP [Suspect]
     Route: 048
     Dates: start: 201211, end: 2012

REACTIONS (2)
  - Anger [Not Recovered/Not Resolved]
  - Social avoidant behaviour [Not Recovered/Not Resolved]
